FAERS Safety Report 17850220 (Version 2)
Quarter: 2020Q2

REPORT INFORMATION
  Report Type: Spontaneous
  Country: US (occurrence: US)
  Receive Date: 20200602
  Receipt Date: 20200605
  Transmission Date: 20200714
  Serious: Yes (Other)
  Sender: FDA-Public Use
  Company Number: US-PFIZER INC-2020214012

PATIENT
  Age: 60 Year
  Sex: Male

DRUGS (2)
  1. PRISTIQ EXTENDED-RELEASE [Suspect]
     Active Substance: DESVENLAFAXINE SUCCINATE
     Dosage: UNK
  2. LYRICA [Suspect]
     Active Substance: PREGABALIN
     Dosage: 100 MG

REACTIONS (10)
  - Myocardial infarction [Unknown]
  - Thrombosis [Unknown]
  - Pain [Unknown]
  - Gait disturbance [Unknown]
  - Schizophrenia [Unknown]
  - Pain in extremity [Unknown]
  - Near death experience [Unknown]
  - Coma [Unknown]
  - Pulmonary embolism [Unknown]
  - Mental disorder [Unknown]
